FAERS Safety Report 9459160 (Version 5)
Quarter: 2014Q2

REPORT INFORMATION
  Report Type: Spontaneous
  Country: US (occurrence: US)
  Receive Date: 20130814
  Receipt Date: 20140522
  Transmission Date: 20141212
  Serious: Yes (Other)
  Sender: FDA-Public Use
  Company Number: US-PFIZER INC-2013229452

PATIENT
  Age: 66 Year
  Sex: Female

DRUGS (2)
  1. PREMPRO [Suspect]
     Dosage: 0.625/2.5 MG, 2X/DAY
     Route: 048
  2. PREMPRO [Suspect]
     Dosage: 0.625MG/2.5MG, 1X/DAY

REACTIONS (8)
  - Goitre [Unknown]
  - Hot flush [Not Recovered/Not Resolved]
  - Malaise [Unknown]
  - Eating disorder [Unknown]
  - Nausea [Unknown]
  - Migraine [Unknown]
  - Nasal congestion [Unknown]
  - Fatigue [Unknown]
